FAERS Safety Report 6099383-9 (Version None)
Quarter: 2009Q1

REPORT INFORMATION
  Report Type: 
  Country: None (occurrence: None)
  Receive Date: 20090303
  Receipt Date: 20090218
  Transmission Date: 20090719
  Serious: Yes (Disabling)
  Sender: FDA-Public Use
  Company Number: BE-PFIZER INC-2009168090

PATIENT

DRUGS (1)
  1. SALAZOPYRIN [Suspect]
     Indication: PSORIATIC ARTHROPATHY
     Dosage: 2 G, 1X/DAY
     Route: 048
     Dates: start: 20051215, end: 20061201

REACTIONS (1)
  - HEPATIC STEATOSIS [None]
